FAERS Safety Report 24293163 (Version 1)
Quarter: 2024Q3

REPORT INFORMATION
  Report Type: Spontaneous
  Country: US (occurrence: None)
  Receive Date: 20240906
  Receipt Date: 20240906
  Transmission Date: 20241016
  Serious: No
  Sender: DOMPE FARMACEUTICI
  Company Number: US-FARMAPROD-202308-202312-3565

PATIENT
  Age: 92 Year
  Sex: Male

DRUGS (4)
  1. OXERVATE [Suspect]
     Active Substance: CENEGERMIN-BKBJ
     Indication: Neurotrophic keratopathy
     Route: 047
     Dates: start: 20231121
  2. ELIQUIS [Concomitant]
     Active Substance: APIXABAN
  3. PREVACID [Concomitant]
     Active Substance: LANSOPRAZOLE
     Dosage: RAPID DISSOLVE
  4. ZETIA [Concomitant]
     Active Substance: EZETIMIBE

REACTIONS (1)
  - Eye pain [Unknown]

NARRATIVE: CASE EVENT DATE: 20231122
